FAERS Safety Report 9556476 (Version 1)
Quarter: 2013Q3

REPORT INFORMATION
  Report Type: Spontaneous
  Country: US (occurrence: US)
  Receive Date: 20130926
  Receipt Date: 20130926
  Transmission Date: 20140515
  Serious: No
  Sender: FDA-Public Use
  Company Number: US-BAYER-2013-116194

PATIENT
  Sex: 0

DRUGS (3)
  1. ALEVE CAPLET [Suspect]
     Dosage: UNK
  2. GLUCOSAMINE [GLUCOSAMINE] [Concomitant]
     Dosage: UNK
  3. VITAMIN D NOS [Concomitant]
     Dosage: UNK

REACTIONS (1)
  - Abdominal discomfort [None]
